FAERS Safety Report 7294304-5 (Version None)
Quarter: 2011Q1

REPORT INFORMATION
  Report Type: 
  Country: None (occurrence: None)
  Receive Date: 20110215
  Receipt Date: 20110128
  Transmission Date: 20110831
  Serious: No
  Sender: FDA-Public Use
  Company Number: JP-MERCK-1007USA01875

PATIENT
  Age: 80 Year
  Sex: Female

DRUGS (6)
  1. NORVASC [Concomitant]
     Dosage: DIVIDED DOSE FREQUENCY U
     Route: 048
     Dates: start: 20090512
  2. OMEPRAL [Concomitant]
     Dosage: DAILY DOSE UNKNOWN
     Route: 065
  3. HYZAAR [Suspect]
     Indication: HYPERTENSION
     Route: 048
     Dates: start: 20090512, end: 20100604
  4. CRESTOR [Concomitant]
     Dosage: DIVIDED DOSE FREQUENCY U
     Route: 048
     Dates: start: 20090512
  5. ACTONEL [Concomitant]
     Dosage: DIVIDED DOSE FREQUENCY U
     Route: 048
     Dates: start: 20090512
  6. LOXONIN [Concomitant]
     Dosage: DAILY DOSAGE UNKNOWN
     Route: 065

REACTIONS (1)
  - LEUKODERMA [None]
